FAERS Safety Report 23217636 (Version 1)
Quarter: 2023Q4

REPORT INFORMATION
  Report Type: Spontaneous
  Country: CA (occurrence: CA)
  Receive Date: 20231122
  Receipt Date: 20231122
  Transmission Date: 20240110
  Serious: Yes (Other)
  Sender: FDA-Public Use
  Company Number: CA-PFIZER INC-202300377360

PATIENT
  Age: 72 Year
  Sex: Male

DRUGS (1)
  1. METHOTREXATE SODIUM [Suspect]
     Active Substance: METHOTREXATE SODIUM
     Indication: Crohn^s disease
     Dosage: 20 MG, WEEKLY
     Route: 048
     Dates: end: 202304

REACTIONS (4)
  - Large intestine polyp [Unknown]
  - Diverticulum [Unknown]
  - Pseudopolyp [Unknown]
  - Off label use [Unknown]

NARRATIVE: CASE EVENT DATE: 20230401
